FAERS Safety Report 4648614-8 (Version None)
Quarter: 2005Q2

REPORT INFORMATION
  Report Type: 
  Country: None (occurrence: None)
  Receive Date: 20050427
  Receipt Date: 20050414
  Transmission Date: 20051028
  Serious: Yes (Other)
  Sender: FDA-Public Use
  Company Number: 2005034890

PATIENT
  Age: 46 Year
  Sex: Male
  Weight: 85 kg

DRUGS (7)
  1. DIFLUCAN [Suspect]
     Indication: ORAL INFECTION
     Dosage: 200 MG (200 MG , 1 IN 1 D), ORAL
     Route: 048
     Dates: start: 20050218
  2. PIROXICAM [Concomitant]
  3. CLARITHROMYCIN [Concomitant]
  4. MICONAZOLE NITRATE [Concomitant]
  5. CETIRIZINE (CETIRIZINE) [Concomitant]
  6. SOFRASOLONE O.R.L. (FRAMYCETIN SULFATE, NAPHAZOLINE NITRATE, PREDNISOL [Concomitant]
  7. SIMVASTATIN [Concomitant]

REACTIONS (1)
  - KAWASAKI'S DISEASE [None]
